FAERS Safety Report 9640628 (Version 2)
Quarter: 2014Q4

REPORT INFORMATION
  Report Type: Spontaneous
  Country: US (occurrence: None)
  Receive Date: 20131021
  Receipt Date: 20141120
  Transmission Date: 20150529
  Serious: Yes (Death)
  Sender: FDA-Public Use
  Company Number: 1713747-2013-99962

PATIENT
  Age: 69 Year
  Sex: Female
  Weight: 150 kg

DRUGS (21)
  1. SIMVASTATIN. [Concomitant]
     Active Substance: SIMVASTATIN
  2. LORTAB [Concomitant]
     Active Substance: ACETAMINOPHEN\HYDROCODONE BITARTRATE
  3. CEFTRIAXONE. [Concomitant]
     Active Substance: CEFTRIAXONE
  4. LOVENOX [Concomitant]
     Active Substance: ENOXAPARIN SODIUM
  5. LACTULOSE. [Concomitant]
     Active Substance: LACTULOSE
  6. HEPARIN [Concomitant]
     Active Substance: HEPARIN SODIUM
  7. TUMS [Concomitant]
     Active Substance: CALCIUM CARBONATE
  8. INSULIN [Concomitant]
     Active Substance: INSULIN NOS
  9. MULTIVITAMIN [Concomitant]
     Active Substance: VITAMINS
  10. PROTONIX [Concomitant]
     Active Substance: PANTOPRAZOLE SODIUM
  11. VITAMIN D [Concomitant]
     Active Substance: CHOLECALCIFEROL
  12. DELFLEX [Suspect]
     Active Substance: CALCIUM CHLORIDE\DEXTROSE MONOHYDRATE\MAGNESIUM CHLORIDE\SODIUM CHLORIDE\SODIUM LACTATE
     Indication: CHRONIC KIDNEY DISEASE
     Dosage: PERITONEAL DIALYSIS
     Dates: start: 20130829
  13. ALLOPURINOL. [Concomitant]
     Active Substance: ALLOPURINOL
  14. VANCOMYCIN [Concomitant]
     Active Substance: VANCOMYCIN
  15. LIBERTY CYCLER TUBING [Concomitant]
  16. PLAVIX [Concomitant]
     Active Substance: CLOPIDOGREL BISULFATE
  17. LEVOTHYROXINE [Concomitant]
     Active Substance: LEVOTHYROXINE
  18. LIBERTY CYCLER [Concomitant]
     Active Substance: DEVICE
  19. ALPRAZOLAM. [Concomitant]
     Active Substance: ALPRAZOLAM
  20. ASPIRING [Concomitant]
     Active Substance: ASPIRIN
  21. RENVELA [Concomitant]
     Active Substance: SEVELAMER CARBONATE

REACTIONS (2)
  - Unresponsive to stimuli [None]
  - Cardio-respiratory arrest [None]

NARRATIVE: CASE EVENT DATE: 20130829
